FAERS Safety Report 18981066 (Version 1)
Quarter: 2021Q1

REPORT INFORMATION
  Report Type: Spontaneous
  Country: US (occurrence: US)
  Receive Date: 20210308
  Receipt Date: 20210308
  Transmission Date: 20210420
  Serious: Yes (Other)
  Sender: FDA-Public Use
  Company Number: US-PFIZER INC-2021236250

PATIENT

DRUGS (1)
  1. TRAZIMERA [Suspect]
     Active Substance: TRASTUZUMAB-QYYP
     Dosage: 340 MG

REACTIONS (3)
  - Cerebrovascular accident [Unknown]
  - Hypoaesthesia [Unknown]
  - Paraesthesia [Unknown]
